FAERS Safety Report 10573457 (Version 1)
Quarter: 2014Q4

REPORT INFORMATION
  Report Type: Spontaneous
  Country: SE (occurrence: SE)
  Receive Date: 20141110
  Receipt Date: 20141110
  Transmission Date: 20150529
  Serious: Yes (Hospitalization)
  Sender: FDA-Public Use
  Company Number: SE-TEVA-519827ISR

PATIENT
  Age: 94 Year
  Sex: Female

DRUGS (10)
  1. MIRTAZAPIN ACTAVIS [Concomitant]
     Active Substance: MIRTAZAPINE
  2. CITALOPRAM CNSPHARMA [Concomitant]
  3. IMOVANE [Concomitant]
     Active Substance: ZOPICLONE
  4. LOCOBASE LPL [Concomitant]
  5. OXASCAND [Suspect]
     Active Substance: OXAZEPAM
  6. ATENOLOL NYCOMED [Concomitant]
  7. METFORMIN MEDA [Concomitant]
  8. CANODERM [Concomitant]
  9. FLUNITRAZEPAM MYLAN [Concomitant]
  10. NITROLINGUAL [Concomitant]
     Active Substance: NITROGLYCERIN

REACTIONS (3)
  - Confusional state [Recovered/Resolved]
  - Muscular weakness [Recovered/Resolved]
  - Fatigue [Recovered/Resolved]

NARRATIVE: CASE EVENT DATE: 20140821
